FAERS Safety Report 8962080 (Version 1)
Quarter: 2012Q4

REPORT INFORMATION
  Report Type: 
  Country: US (occurrence: US)
  Receive Date: 20121212
  Receipt Date: 20121212
  Transmission Date: 20130627
  Serious: No
  Sender: FDA-Public Use
  Company Number: US-PFIZER INC-2012313086

PATIENT
  Age: 56 Year
  Sex: Female
  Weight: 107 kg

DRUGS (4)
  1. CHANTIX [Suspect]
     Indication: SMOKING CESSATION THERAPY
     Dosage: UNK
  2. CHANTIX [Suspect]
     Dosage: UNK
     Dates: start: 201203, end: 2012
  3. CHANTIX [Suspect]
     Dosage: UNK
     Dates: start: 2012
  4. LISINOPRIL [Concomitant]
     Indication: BLOOD PRESSURE HIGH
     Dosage: UNK, daily

REACTIONS (1)
  - Drug ineffective [Unknown]
